FAERS Safety Report 20037545 (Version 3)
Quarter: 2021Q4

REPORT INFORMATION
  Report Type: Spontaneous
  Country: SE (occurrence: SE)
  Receive Date: 20211105
  Receipt Date: 20211220
  Transmission Date: 20220304
  Serious: Yes (Death, Life-Threatening, Hospitalization, Other)
  Sender: FDA-Public Use
  Company Number: SE-Accord-234042

PATIENT
  Age: 68 Year
  Sex: Female
  Weight: 75.1 kg

DRUGS (55)
  1. OXALIPLATIN [Suspect]
     Active Substance: OXALIPLATIN
     Indication: Diffuse large B-cell lymphoma stage IV
     Dosage: UNK (183 MILLIGRAM, SINGLE)
     Route: 042
     Dates: start: 20210223, end: 20210223
  2. OXALIPLATIN [Suspect]
     Active Substance: OXALIPLATIN
     Dosage: UNK (183 MILLIGRAM, SINGLE)
     Route: 042
     Dates: start: 20210429, end: 20210429
  3. OXALIPLATIN [Suspect]
     Active Substance: OXALIPLATIN
     Dosage: UNK (182 MILLIGRAM, SINGLE)
     Route: 042
     Dates: start: 20210517, end: 20210517
  4. OXALIPLATIN [Suspect]
     Active Substance: OXALIPLATIN
     Dosage: UNK (181 MILLIGRAM, SINGLE)
     Route: 042
     Dates: start: 20210326, end: 20210326
  5. OXALIPLATIN [Suspect]
     Active Substance: OXALIPLATIN
     Dosage: UNK (182 MILLIGRAM, SINGLE)
     Route: 042
     Dates: start: 20210531, end: 20210531
  6. OXALIPLATIN [Suspect]
     Active Substance: OXALIPLATIN
     Dosage: UNK (181 MILLIGRAM, SINGLE)
     Route: 042
     Dates: start: 20210413, end: 20210413
  7. OXALIPLATIN [Suspect]
     Active Substance: OXALIPLATIN
     Dosage: UNK (187 MILLIGRAM, SINGLE)
     Route: 042
     Dates: start: 20210202, end: 20210202
  8. OXALIPLATIN [Suspect]
     Active Substance: OXALIPLATIN
     Dosage: UNK (182 MILLIGRAM, SINGLE)
     Route: 042
     Dates: start: 20210312, end: 20210312
  9. OXALIPLATIN [Suspect]
     Active Substance: OXALIPLATIN
     Dosage: 100 MILLIGRAM/SQ. METER (1Q2W)
     Route: 042
     Dates: start: 20210608, end: 20210706
  10. OXALIPLATIN [Suspect]
     Active Substance: OXALIPLATIN
     Dosage: UNK (182 MILLIGRAM, SINGLE)
     Route: 042
     Dates: start: 20210429, end: 20210429
  11. GEMCITABINE [Suspect]
     Active Substance: GEMCITABINE
     Indication: Diffuse large B-cell lymphoma stage IV
     Dosage: UNK (1830 MILLIGRAM, SINGLE)
     Route: 042
     Dates: start: 20210223, end: 20210223
  12. GEMCITABINE [Suspect]
     Active Substance: GEMCITABINE
     Dosage: UNK (1830 MILLIGRAM, SINGLE)
     Route: 042
     Dates: start: 20210413, end: 20210413
  13. GEMCITABINE [Suspect]
     Active Substance: GEMCITABINE
     Dosage: UNK (1830 MILLIGRAM, SINGLE)
     Route: 042
     Dates: start: 20210312, end: 20210312
  14. GEMCITABINE [Suspect]
     Active Substance: GEMCITABINE
     Dosage: UNK (1830 MILLIGRAM, SINGLE)
     Route: 042
     Dates: start: 20210202, end: 20210202
  15. GEMCITABINE [Suspect]
     Active Substance: GEMCITABINE
     Dosage: UNK (1830 MILLIGRAM, SINGLE)
     Route: 042
     Dates: start: 20210429, end: 20210429
  16. GEMCITABINE [Suspect]
     Active Substance: GEMCITABINE
     Dosage: UNK (1830 MILLIGRAM, SINGLE)
     Route: 042
     Dates: start: 20210531, end: 20210531
  17. GEMCITABINE [Suspect]
     Active Substance: GEMCITABINE
     Dosage: UNK (1830 MILLIGRAM, SINGLE)
     Route: 042
     Dates: start: 20210517, end: 20210517
  18. GEMCITABINE [Suspect]
     Active Substance: GEMCITABINE
     Dosage: UNK (1830 MILLIGRAM, SINGLE)
     Route: 042
     Dates: start: 20210326, end: 20210326
  19. GEMCITABINE [Suspect]
     Active Substance: GEMCITABINE
     Dosage: UNK (1820 MILLIGRAM, SINGLE)
     Route: 042
     Dates: start: 20210312, end: 20210312
  20. GEMCITABINE [Suspect]
     Active Substance: GEMCITABINE
     Dosage: UNK (1820 MILLIGRAM, SINGLE)
     Route: 042
     Dates: start: 20210531, end: 20210531
  21. GEMCITABINE [Suspect]
     Active Substance: GEMCITABINE
     Dosage: UNK (1820 MILLIGRAM, SINGLE)
     Route: 042
     Dates: start: 20210517, end: 20210517
  22. GEMCITABINE [Suspect]
     Active Substance: GEMCITABINE
     Dosage: UNK (1820 MILLIGRAM, SINGLE)
     Route: 042
     Dates: start: 20210429, end: 20210429
  23. GEMCITABINE [Suspect]
     Active Substance: GEMCITABINE
     Dosage: UNK (1000 MILLIGRAM, 1Q2W)
     Route: 042
     Dates: start: 20210608, end: 20210706
  24. GEMCITABINE [Suspect]
     Active Substance: GEMCITABINE
     Dosage: UNK (1870 MILLIGRAM, SINGLE)
     Route: 042
     Dates: start: 20210202, end: 20210202
  25. GEMCITABINE [Suspect]
     Active Substance: GEMCITABINE
     Dosage: UNK (1810 MILLIGRAM, SINGLE)
     Route: 042
     Dates: start: 20210413, end: 20210413
  26. SOLU-MEDROL [Concomitant]
     Active Substance: METHYLPREDNISOLONE SODIUM SUCCINATE
     Dosage: UNK
     Dates: start: 20210319
  27. PANTOPRAZOLE [Concomitant]
     Active Substance: PANTOPRAZOLE
     Dosage: UNK
     Dates: start: 20200511, end: 20210704
  28. PREDNISOLONE [Concomitant]
     Active Substance: PREDNISOLONE
     Dosage: UNK
     Dates: start: 20210514, end: 20210531
  29. ACYCLOVIR [Concomitant]
     Active Substance: ACYCLOVIR
     Dosage: UNK
     Dates: start: 20200916
  30. ACYCLOVIR [Concomitant]
     Active Substance: ACYCLOVIR
     Dosage: UNK
     Dates: start: 20210215, end: 20210624
  31. ACYCLOVIR [Concomitant]
     Active Substance: ACYCLOVIR
     Dosage: UNK
     Dates: start: 20200619
  32. CALCIUM CARBONATE [Concomitant]
     Active Substance: CALCIUM CARBONATE
     Dosage: UNK
     Dates: start: 20200402, end: 20210702
  33. ALLOPURINOL [Concomitant]
     Active Substance: ALLOPURINOL
     Dosage: UNK
     Dates: start: 20210517, end: 20210517
  34. KALIUMCHLORIDE [Concomitant]
     Dosage: UNK
     Dates: start: 20210608, end: 20210614
  35. ONDANSETRON [Concomitant]
     Active Substance: ONDANSETRON
     Dosage: UNK
     Dates: start: 20210517, end: 20210517
  36. ATENOLOL [Concomitant]
     Active Substance: ATENOLOL
     Dosage: UNK
     Dates: start: 20210616, end: 20210704
  37. ACETAMINOPHEN [Concomitant]
     Active Substance: ACETAMINOPHEN
     Dosage: UNK
     Dates: start: 20210514, end: 20210624
  38. ACETAMINOPHEN [Concomitant]
     Active Substance: ACETAMINOPHEN
     Dosage: UNK
     Dates: start: 20210713, end: 20210713
  39. PEGFILGRASTIM [Concomitant]
     Active Substance: PEGFILGRASTIM
     Dosage: UNK
     Dates: start: 20210520, end: 20210520
  40. CALCIUM POLYSTYRENE SULFONATE [Concomitant]
     Active Substance: CALCIUM POLYSTYRENE SULFONATE
     Dosage: UNK
     Dates: start: 20210701, end: 20210704
  41. CETIRIZINE HYDROCHLORIDE [Concomitant]
     Active Substance: CETIRIZINE HYDROCHLORIDE
     Dosage: UNK
     Dates: start: 20210514, end: 20210531
  42. CETIRIZINE HYDROCHLORIDE [Concomitant]
     Active Substance: CETIRIZINE HYDROCHLORIDE
     Dosage: UNK
     Dates: start: 20210713, end: 20210713
  43. SPIRONOLACTONE [Concomitant]
     Active Substance: SPIRONOLACTONE
     Dosage: UNK
     Dates: start: 20210618, end: 20210630
  44. ZOPICLONE [Concomitant]
     Active Substance: ZOPICLONE
     Dosage: UNK
     Dates: start: 20200318, end: 20210704
  45. FUROSEMIDE [Concomitant]
     Active Substance: FUROSEMIDE
     Dosage: UNK
     Dates: start: 20210613, end: 20210704
  46. DALTEPARIN [Concomitant]
     Active Substance: DALTEPARIN
     Dosage: UNK
     Dates: start: 20210326, end: 20210525
  47. TOCILIZUMAB [Concomitant]
     Active Substance: TOCILIZUMAB
     Dosage: UNK
     Dates: start: 20210707, end: 20210707
  48. TOCILIZUMAB [Concomitant]
     Active Substance: TOCILIZUMAB
     Dosage: UNK
     Dates: start: 20210606, end: 20210707
  49. DIGOXIN [Concomitant]
     Active Substance: DIGOXIN
     Dosage: UNK
     Dates: start: 20210705, end: 20210706
  50. DEXAMETHASONE SODIUM PHOSPHATE [Concomitant]
     Active Substance: DEXAMETHASONE SODIUM PHOSPHATE
     Dosage: UNK
     Dates: start: 20210707, end: 20210710
  51. FILGRASTIM [Concomitant]
     Active Substance: FILGRASTIM
     Dosage: UNK
     Dates: start: 20210612, end: 20210706
  52. CHOLECALCIFEROL [Concomitant]
     Active Substance: CHOLECALCIFEROL
     Dosage: UNK
     Dates: start: 20200408, end: 20210704
  53. CALCIUM CHLORIDE [Concomitant]
     Active Substance: CALCIUM CHLORIDE
     Dosage: UNK
     Dates: start: 20210706, end: 20210707
  54. PREDNISONE [Concomitant]
     Active Substance: PREDNISONE
     Dosage: UNK
     Dates: start: 20210706, end: 20210709
  55. PREDNISONE [Concomitant]
     Active Substance: PREDNISONE
     Dosage: UNK
     Dates: start: 20210713, end: 20210716

REACTIONS (5)
  - Small intestinal perforation [Fatal]
  - Ascites [Fatal]
  - Multiple organ dysfunction syndrome [Fatal]
  - Cytokine release syndrome [Recovered/Resolved]
  - Off label use [Unknown]

NARRATIVE: CASE EVENT DATE: 20210606
